FAERS Safety Report 9229100 (Version 1)
Quarter: 2013Q2

REPORT INFORMATION
  Report Type: Spontaneous
  Country: FR (occurrence: FR)
  Receive Date: 20130412
  Receipt Date: 20130412
  Transmission Date: 20140414
  Serious: Yes (Hospitalization)
  Sender: FDA-Public Use
  Company Number: FR-BAXTER-2013BAX012470

PATIENT
  Age: 66 Year
  Sex: Female

DRUGS (10)
  1. HOLOXAN 2000 MG, POUDRE POUR USAGE PARENT?RAL [Suspect]
     Indication: SYNOVIAL SARCOMA
     Route: 042
     Dates: start: 201206, end: 201210
  2. UN-ALFA [Concomitant]
     Indication: PRODUCT USED FOR UNKNOWN INDICATION
     Route: 065
  3. LEVOTHYROX [Concomitant]
     Indication: PRODUCT USED FOR UNKNOWN INDICATION
     Route: 065
  4. TRANSIPEG [Concomitant]
     Indication: PRODUCT USED FOR UNKNOWN INDICATION
     Route: 065
  5. SKENAN [Concomitant]
     Indication: PRODUCT USED FOR UNKNOWN INDICATION
     Route: 065
  6. SEROPLEX [Concomitant]
     Indication: PRODUCT USED FOR UNKNOWN INDICATION
     Route: 065
  7. INEXIUM [Concomitant]
     Indication: PRODUCT USED FOR UNKNOWN INDICATION
     Route: 065
  8. ADRIBLASTINE [Concomitant]
     Indication: SYNOVIAL SARCOMA
     Route: 065
     Dates: start: 2009
  9. HOLOXAN 2000 MG, POUDRE POUR USAGE PARENT?RAL [Concomitant]
     Indication: SYNOVIAL SARCOMA
     Route: 065
     Dates: start: 2009
  10. YONDELIS [Concomitant]
     Indication: SYNOVIAL SARCOMA
     Route: 065
     Dates: start: 2011

REACTIONS (1)
  - Fanconi syndrome [Not Recovered/Not Resolved]
